FAERS Safety Report 7010929-6 (Version None)
Quarter: 2010Q3

REPORT INFORMATION
  Report Type: 
  Country: None (occurrence: None)
  Receive Date: 20100923
  Receipt Date: 20100923
  Transmission Date: 20110219
  Serious: Yes (Hospitalization)
  Sender: FDA-Public Use
  Company Number: None

PATIENT
  Sex: Male
  Weight: 81.6475 kg

DRUGS (4)
  1. NADOLOL [Suspect]
     Dosage: 20MG 1 DAILY MOUTH
     Dates: start: 20100911
  2. NADOLOL [Suspect]
     Dosage: 20MG 1 DAILY MOUTH
     Dates: start: 20100912
  3. NADOLOL [Suspect]
     Dosage: 20MG 1 DAILY MOUTH
     Dates: start: 20100913
  4. NADOLOL [Suspect]
     Dosage: 20MG 1 DAILY MOUTH
     Dates: start: 20100914

REACTIONS (3)
  - BALANCE DISORDER [None]
  - DECREASED ACTIVITY [None]
  - TREMOR [None]
